FAERS Safety Report 9056590 (Version 1)
Quarter: 2013Q1

REPORT INFORMATION
  Report Type: Report from Study
  Country: US (occurrence: US)
  Receive Date: 20130204
  Receipt Date: 20130204
  Transmission Date: 20140127
  Serious: Yes (Other)
  Sender: FDA-Public Use
  Company Number: US-US-EMD SERONO, INC.-7190627

PATIENT
  Sex: Female

DRUGS (2)
  1. REBIF [Suspect]
     Indication: MULTIPLE SCLEROSIS
     Dates: end: 201209
  2. REBIF [Suspect]
     Route: 058
     Dates: start: 20130128

REACTIONS (2)
  - Breast cancer [Unknown]
  - Multiple sclerosis relapse [Unknown]
